FAERS Safety Report 13855678 (Version 8)
Quarter: 2023Q1

REPORT INFORMATION
  Report Type: Spontaneous
  Country: US (occurrence: US)
  Receive Date: 20170810
  Receipt Date: 20230314
  Transmission Date: 20230417
  Serious: No
  Sender: FDA-Public Use
  Company Number: US-VIFOR (INTERNATIONAL) INC.-VIT-2017-07030

PATIENT
  Age: 60 Year
  Sex: Male

DRUGS (15)
  1. VELTASSA [Suspect]
     Active Substance: PATIROMER
     Indication: Hyperkalaemia
     Route: 048
     Dates: start: 20170217
  2. VELTASSA [Suspect]
     Active Substance: PATIROMER
     Dosage: DOSE CHANGED
     Route: 048
     Dates: start: 2018
  3. VELTASSA [Suspect]
     Active Substance: PATIROMER
     Route: 048
     Dates: start: 2018
  4. VELTASSA [Suspect]
     Active Substance: PATIROMER
     Route: 048
  5. ASPIRIN EC LOW DOSE [Concomitant]
  6. FIBER [Concomitant]
  7. FISH OIL [Concomitant]
     Active Substance: FISH OIL
  8. LASIX [Concomitant]
     Active Substance: FUROSEMIDE
  9. LIPITOR [Concomitant]
     Active Substance: ATORVASTATIN CALCIUM
  10. LOSARTAN POTASSIUM [Concomitant]
     Active Substance: LOSARTAN POTASSIUM
  11. MAGNESIUM [Concomitant]
     Active Substance: MAGNESIUM
  12. VITAMINS [Concomitant]
     Active Substance: VITAMINS
  13. SODIUM BICARBONATE [Concomitant]
     Active Substance: SODIUM BICARBONATE
  14. TYLENOL EXTRA STRENGTH [Concomitant]
     Active Substance: ACETAMINOPHEN
  15. VITAMIN D3 [Concomitant]
     Active Substance: CHOLECALCIFEROL

REACTIONS (5)
  - Blood potassium increased [Not Recovered/Not Resolved]
  - Abdominal discomfort [Recovered/Resolved]
  - Flatulence [Not Recovered/Not Resolved]
  - Product dose omission issue [Unknown]
  - Off label use [Unknown]

NARRATIVE: CASE EVENT DATE: 20170101
